FAERS Safety Report 6346902-0 (Version None)
Quarter: 2009Q3

REPORT INFORMATION
  Report Type: 
  Country: None (occurrence: None)
  Receive Date: 20090910
  Receipt Date: 20090908
  Transmission Date: 20100115
  Serious: Yes (Death, Hospitalization)
  Sender: FDA-Public Use
  Company Number: TN-EISAI INC.-E2090-00836-SPO-TN

PATIENT
  Sex: Male

DRUGS (4)
  1. EXCEGRAN [Suspect]
     Dosage: UNKNOWN
     Route: 048
  2. VALPROATE SODIUM [Concomitant]
  3. CLONAZEPAM [Concomitant]
  4. PIRACETAM [Concomitant]

REACTIONS (3)
  - DISEASE COMPLICATION [None]
  - PNEUMONIA [None]
  - STATUS EPILEPTICUS [None]
